FAERS Safety Report 13305131 (Version 1)
Quarter: 2017Q1

REPORT INFORMATION
  Report Type: Report from Study
  Country: CA (occurrence: CA)
  Receive Date: 20170308
  Receipt Date: 20170308
  Transmission Date: 20170428
  Serious: Yes (Other)
  Sender: FDA-Public Use
  Company Number: PHHY2017CA030045

PATIENT
  Sex: Male

DRUGS (3)
  1. COSENTYX [Suspect]
     Active Substance: SECUKINUMAB
     Dosage: UNK, QMO
     Route: 065
     Dates: start: 20170207
  2. COSENTYX [Suspect]
     Active Substance: SECUKINUMAB
     Dosage: UNK, QMO
     Route: 065
     Dates: start: 20170107
  3. COSENTYX [Suspect]
     Active Substance: SECUKINUMAB
     Indication: PSORIASIS
     Dosage: 300 MG, QW
     Route: 058
     Dates: start: 20161213, end: 20170103

REACTIONS (10)
  - Nasopharyngitis [Unknown]
  - Skin discolouration [Unknown]
  - Skin fissures [Unknown]
  - Fatigue [Unknown]
  - Dry skin [Unknown]
  - Inappropriate schedule of drug administration [Unknown]
  - Drug effect incomplete [Unknown]
  - Cough [Not Recovered/Not Resolved]
  - Insomnia [Unknown]
  - Bronchitis [Unknown]
